FAERS Safety Report 7254926-4 (Version None)
Quarter: 2011Q1

REPORT INFORMATION
  Report Type: 
  Country: None (occurrence: None)
  Receive Date: 20110129
  Receipt Date: 20100203
  Transmission Date: 20110831
  Serious: No
  Sender: FDA-Public Use
  Company Number: US-ABBOTT-10P-163-0624596-00

PATIENT
  Sex: Male
  Weight: 86.26 kg

DRUGS (3)
  1. HUMIRA [Suspect]
     Indication: PSORIASIS
     Route: 058
     Dates: start: 20091001
  2. CYMBALTA [Concomitant]
     Indication: FIBROMYALGIA
     Dosage: UNKNOWN
  3. ALLERGY SHOTS [Concomitant]
     Indication: PRODUCT USED FOR UNKNOWN INDICATION
     Dates: start: 20090901

REACTIONS (4)
  - HOT FLUSH [None]
  - EYE PRURITUS [None]
  - BURNING SENSATION [None]
  - PRURITUS GENERALISED [None]
